FAERS Safety Report 8875244 (Version 1)
Quarter: 2012Q4

REPORT INFORMATION
  Report Type: 
  Country: US (occurrence: US)
  Receive Date: 20121023
  Receipt Date: 20121023
  Transmission Date: 20130627
  Serious: No
  Sender: FDA-Public Use
  Company Number: US-ASTRAZENECA-2012SE76258

PATIENT
  Age: 37 Year
  Sex: Female

DRUGS (1)
  1. SYMBICORT PMDI [Suspect]
     Indication: ASTHMA
     Dosage: 160/4.5, BID
     Route: 055

REACTIONS (3)
  - Asthma [Unknown]
  - Activities of daily living impaired [Unknown]
  - Sleep disorder due to general medical condition, insomnia type [Unknown]
